FAERS Safety Report 7204986-1 (Version None)
Quarter: 2010Q4

REPORT INFORMATION
  Report Type: 
  Country: None (occurrence: None)
  Receive Date: 20101230
  Receipt Date: 20101227
  Transmission Date: 20110411
  Serious: Yes (Other)
  Sender: FDA-Public Use
  Company Number: JP-PFIZER INC-2010179280

PATIENT
  Age: 72 Year
  Sex: Male

DRUGS (1)
  1. DETRUSITOL [Suspect]
     Dosage: 4 MG, 1X/DAY
     Route: 048

REACTIONS (1)
  - HALLUCINATION, VISUAL [None]
